FAERS Safety Report 13180300 (Version 1)
Quarter: 2017Q1

REPORT INFORMATION
  Report Type: Spontaneous
  Country: FR (occurrence: FR)
  Receive Date: 20170202
  Receipt Date: 20170202
  Transmission Date: 20170428
  Serious: Yes (Death)
  Sender: FDA-Public Use
  Company Number: FR-MERCK KGAA-1062663

PATIENT
  Age: 58 Year
  Sex: Male

DRUGS (30)
  1. MIDAZOLAM [Concomitant]
     Active Substance: MIDAZOLAM HYDROCHLORIDE
     Dates: start: 20161117, end: 20161128
  2. ISUPREL [Concomitant]
     Active Substance: ISOPROTERENOL HYDROCHLORIDE
     Dates: start: 20161117, end: 20161128
  3. PRIMPERAN [Concomitant]
     Active Substance: METOCLOPRAMIDE HYDROCHLORIDE
     Dates: start: 20161128
  4. CANCIDAS [Concomitant]
     Active Substance: CASPOFUNGIN ACETATE
     Dates: start: 20161126, end: 20161128
  5. HEPARIN SODIUM. [Suspect]
     Active Substance: HEPARIN SODIUM
     Route: 058
     Dates: start: 20161120, end: 20161128
  6. FUNGIZONE [Suspect]
     Active Substance: AMPHOTERICIN B
     Route: 048
     Dates: start: 20161119, end: 20161128
  7. SUFENTA [Concomitant]
     Active Substance: SUFENTANIL CITRATE
     Dates: start: 20161117, end: 20161128
  8. VANCOMYCIN SANDOZ [Concomitant]
     Active Substance: VANCOMYCIN
     Dates: start: 20161128
  9. NIMBEX [Concomitant]
     Active Substance: CISATRACURIUM BESYLATE
     Dates: start: 20161128
  10. TIENAM [Concomitant]
     Active Substance: CILASTATIN SODIUM\IMIPENEM
     Dates: start: 20161126, end: 20161128
  11. TAZOCILLINE [Suspect]
     Active Substance: PIPERACILLIN SODIUM\TAZOBACTAM SODIUM
     Route: 042
     Dates: start: 20161118, end: 20161126
  12. OGASTORO [Suspect]
     Active Substance: LANSOPRAZOLE
     Route: 048
     Dates: start: 20161120, end: 20161123
  13. DOBUTAMINE [Concomitant]
     Active Substance: DOBUTAMINE\DOBUTAMINE HYDROCHLORIDE
     Dates: start: 20161117, end: 20161118
  14. NOREPINEPHRINE [Concomitant]
     Active Substance: NOREPINEPHRINE\NOREPINEPHRINE BITARTRATE
     Dates: start: 20161117, end: 20161128
  15. CORDARONE [Suspect]
     Active Substance: AMIODARONE HYDROCHLORIDE
     Route: 042
     Dates: start: 20161123, end: 20161128
  16. AZANTAC [Suspect]
     Active Substance: RANITIDINE HYDROCHLORIDE
     Route: 048
     Dates: start: 20161123, end: 20161128
  17. EUPANTOL [Concomitant]
     Active Substance: PANTOPRAZOLE SODIUM
  18. LASILIX [Concomitant]
     Active Substance: FUROSEMIDE
     Dates: start: 20161117, end: 20161119
  19. ADRENALINE [Concomitant]
     Active Substance: EPINEPHRINE
     Dates: start: 20161121
  20. NOVOTHYROX [Suspect]
     Active Substance: LEVOTHYROXINE SODIUM
     Indication: HYPOTHYROIDISM
     Route: 048
     Dates: start: 20161123, end: 20161125
  21. VASTEN [Suspect]
     Active Substance: PRAVASTATIN SODIUM
     Route: 048
     Dates: start: 20161122, end: 20161125
  22. PROPOFOL. [Suspect]
     Active Substance: PROPOFOL
     Route: 048
     Dates: start: 20161117, end: 20161128
  23. N-ACETYLCYSTEINE [Concomitant]
     Active Substance: ACETYLCYSTEINE
     Dates: start: 20161127, end: 20161128
  24. CELLCEPT [Suspect]
     Active Substance: MYCOPHENOLATE MOFETIL\MYCOPHENOLATE MOFETIL HYDROCHLORIDE
     Route: 048
     Dates: start: 20161117, end: 20161128
  25. CYCLOSPORINE. [Suspect]
     Active Substance: CYCLOSPORINE
     Route: 051
     Dates: start: 20161120, end: 20161128
  26. BACTRIM [Suspect]
     Active Substance: SULFAMETHOXAZOLE\TRIMETHOPRIM
     Route: 042
     Dates: start: 20161121, end: 20161125
  27. ERYTHROMYCIN. [Suspect]
     Active Substance: ERYTHROMYCIN
     Route: 048
     Dates: start: 20161125, end: 20161128
  28. SOLU-MEDROL [Suspect]
     Active Substance: METHYLPREDNISOLONE SODIUM SUCCINATE
     Route: 042
     Dates: start: 20161117, end: 20161128
  29. AMIKACIN [Suspect]
     Active Substance: AMIKACIN
     Route: 048
     Dates: start: 20161118, end: 20161126
  30. ACICLOVIR [Concomitant]
     Active Substance: ACYCLOVIR
     Dates: start: 20161127, end: 20161128

REACTIONS (1)
  - Hepatitis fulminant [Fatal]

NARRATIVE: CASE EVENT DATE: 20161125
